FAERS Safety Report 7039554-8 (Version None)
Quarter: 2010Q4

REPORT INFORMATION
  Report Type: 
  Country: None (occurrence: None)
  Receive Date: 20101012
  Receipt Date: 20101006
  Transmission Date: 20110411
  Serious: Yes (Death, Hospitalization)
  Sender: FDA-Public Use
  Company Number: A0713323A

PATIENT
  Age: 57 Year
  Sex: Male
  Weight: 136.4 kg

DRUGS (14)
  1. AVANDIA [Suspect]
     Indication: TYPE 2 DIABETES MELLITUS
     Dosage: 4MG PER DAY
     Route: 048
     Dates: start: 20041206, end: 20060425
  2. DIABETA [Concomitant]
     Dates: start: 19980101, end: 20050101
  3. ATENOLOL [Concomitant]
  4. LISINOPRIL [Concomitant]
  5. HYDROCODONE [Concomitant]
  6. ASPIRIN [Concomitant]
  7. PLAVIX [Concomitant]
  8. INTERFERON [Concomitant]
  9. LASIX [Concomitant]
  10. GLYBURIDE [Concomitant]
  11. INSULIN [Concomitant]
  12. LEVOTHYROXINE SODIUM [Concomitant]
  13. OXYBUTYN [Concomitant]
  14. SIMVASTATIN [Concomitant]

REACTIONS (20)
  - ANHEDONIA [None]
  - ANXIETY [None]
  - ARTERIOSCLEROSIS CORONARY ARTERY [None]
  - CONVULSION [None]
  - CORONARY ARTERY DISEASE [None]
  - DEPRESSION [None]
  - ECONOMIC PROBLEM [None]
  - EMOTIONAL DISORDER [None]
  - HAEMORRHAGIC DIATHESIS [None]
  - HYPOGLYCAEMIA [None]
  - LOSS OF EMPLOYMENT [None]
  - MALIGNANT NEOPLASM PROGRESSION [None]
  - MENTAL DISORDER [None]
  - METASTASES TO BONE [None]
  - MYOCARDIAL INFARCTION [None]
  - PAIN [None]
  - RENAL CELL CARCINOMA [None]
  - RESPIRATORY ARREST [None]
  - RIB FRACTURE [None]
  - STRESS [None]
